FAERS Safety Report 6238743-X (Version None)
Quarter: 2009Q2

REPORT INFORMATION
  Report Type: 
  Country: None (occurrence: None)
  Receive Date: 20090617
  Receipt Date: 20090617
  Transmission Date: 20091009
  Serious: Yes (Hospitalization)
  Sender: FDA-Public Use
  Company Number: None

PATIENT
  Age: 66 Year
  Sex: Female
  Weight: 45.7 kg

DRUGS (12)
  1. GEMCITABINE [Suspect]
     Indication: BLADDER CANCER
     Dosage: DAYS 1,8 AND 15 MG/M**2 CYC IV
     Route: 042
     Dates: start: 20090530, end: 20090530
  2. CISPLATIN [Suspect]
     Indication: BLADDER CANCER
     Dosage: 97 MG/DAY IV
     Route: 042
     Dates: start: 20081204, end: 20090523
  3. ALENDRONATE [Concomitant]
  4. TRIAMTERENE AND HYDROCHLOROTHIAZIDE [Concomitant]
  5. FELODIPINE ER [Concomitant]
  6. RAMIPRIL [Concomitant]
  7. OXYCODONE AND ACETAMINOPHEN [Concomitant]
  8. ONDANSETRON [Concomitant]
  9. DEXAMETHASONE [Concomitant]
  10. APREPITANT [Concomitant]
  11. LASIX [Concomitant]
  12. . [Concomitant]

REACTIONS (14)
  - ABDOMINAL PAIN [None]
  - ABDOMINAL PAIN UPPER [None]
  - ASTHENIA [None]
  - BLOOD CHLORIDE DECREASED [None]
  - BLOOD POTASSIUM DECREASED [None]
  - BLOOD PRESSURE SYSTOLIC INCREASED [None]
  - BLOOD SODIUM DECREASED [None]
  - BODY TEMPERATURE INCREASED [None]
  - LIPASE DECREASED [None]
  - NAUSEA [None]
  - PAIN [None]
  - URINARY TRACT INFECTION [None]
  - VOMITING [None]
  - WHITE BLOOD CELL COUNT INCREASED [None]
